FAERS Safety Report 17733477 (Version 1)
Quarter: 2020Q2

REPORT INFORMATION
  Report Type: Spontaneous
  Country: US (occurrence: US)
  Receive Date: 20200430
  Receipt Date: 20200430
  Transmission Date: 20200714
  Serious: No
  Sender: FDA-Public Use
  Company Number: None

PATIENT
  Age: 72 Year
  Sex: Male
  Weight: 94 kg

DRUGS (1)
  1. ROSUVASTATIN (ROSUVASTATIN CA 10MG TAB) [Suspect]
     Active Substance: ROSUVASTATIN
     Route: 048
     Dates: start: 20191126, end: 20191231

REACTIONS (1)
  - Swelling [None]

NARRATIVE: CASE EVENT DATE: 20191231
